FAERS Safety Report 7525556-1 (Version None)
Quarter: 2011Q2

REPORT INFORMATION
  Report Type: 
  Country: None (occurrence: None)
  Receive Date: 20110606
  Receipt Date: 20110523
  Transmission Date: 20111010
  Serious: Yes (Other)
  Sender: FDA-Public Use
  Company Number: PHEH2005US10693

PATIENT
  Sex: Female
  Weight: 117.46 kg

DRUGS (40)
  1. AREDIA [Suspect]
     Dates: end: 20050401
  2. VELCADE [Concomitant]
     Dosage: 2.6 MG, QW
     Dates: start: 20041115, end: 20051215
  3. VELCADE [Concomitant]
     Dosage: DAYS 1, 8 EVERY 21 DAYS
     Dates: start: 20041101
  4. VELCADE [Concomitant]
     Dates: start: 20060227, end: 20060605
  5. VELCADE [Concomitant]
     Dates: start: 20060825, end: 20061124
  6. PENICILLIN NOS [Concomitant]
     Dosage: 1000 MG, TID
     Route: 048
     Dates: start: 20050408
  7. VINCRISTINE + ADRIAMYCIN + DEXAMETHASONE [Concomitant]
     Indication: MULTIPLE MYELOMA
     Dosage: 0.4MG 4 DAYS Q4WKS
     Route: 042
     Dates: start: 19990405, end: 19990601
  8. PLATINOL [Concomitant]
     Dosage: 800 MG QD OVER 4 DAYS
     Route: 042
     Dates: start: 19991101, end: 20000301
  9. ETOPOSIDE [Concomitant]
     Dates: start: 19991101, end: 20000301
  10. FLUCONAZOLE [Concomitant]
     Indication: PROPHYLAXIS
  11. THALIDOMIDE [Concomitant]
     Dates: start: 20020901, end: 20021201
  12. DEXAMETHASONE [Concomitant]
     Indication: CHEMOTHERAPY
     Dosage: 40 MG, QD
     Route: 048
     Dates: start: 19991119
  13. ATIVAN [Concomitant]
     Indication: ANXIETY
     Dosage: UNK, PRN
     Dates: start: 19991101
  14. CALCIUM CARBONATE [Concomitant]
  15. DECADRON #1 [Concomitant]
     Dates: start: 20011101, end: 20011101
  16. ZOLOFT [Concomitant]
     Indication: DEPRESSION
     Dosage: 100 MG, QD
     Dates: start: 19991101
  17. AREDIA [Suspect]
     Indication: MULTIPLE MYELOMA
     Dosage: 90 MG QMOS
     Dates: start: 19980801, end: 20020411
  18. ZOMETA [Suspect]
     Indication: MULTIPLE MYELOMA
     Dosage: 4MG QMOS
     Dates: start: 20020510, end: 20050401
  19. THALIDOMIDE [Concomitant]
     Dates: start: 20030301, end: 20030301
  20. TRISENOX [Concomitant]
     Dates: start: 20020901, end: 20021201
  21. FILGRASTIM [Concomitant]
     Dates: start: 19991111
  22. ACLOVIR [Concomitant]
     Indication: PROPHYLAXIS
  23. RADIATION THERAPY [Concomitant]
     Indication: RADIOTHERAPY
  24. PAMELOR [Concomitant]
     Indication: DEPRESSION
     Dosage: 10 MG, QHS
     Route: 048
     Dates: start: 19981001
  25. LEVOFLOXACIN [Concomitant]
     Indication: PROPHYLAXIS
  26. ZOMETA [Suspect]
     Dates: start: 20041115
  27. DECADRON #1 [Concomitant]
     Dates: start: 19991101, end: 20000301
  28. VERAPAMIL [Concomitant]
     Indication: HYPERTENSION
     Dosage: 80 MG, Q8H
     Route: 048
     Dates: start: 19950801
  29. TRAZODONE HCL [Concomitant]
     Dosage: 50 MG, QHS
     Route: 048
     Dates: start: 20020404
  30. VELCADE [Concomitant]
     Dosage: 2.6 MG DAYS1,4,8,11 MONTHLY
     Dates: start: 20030714, end: 20040201
  31. CYTOXAN [Concomitant]
     Dates: start: 20001101, end: 20001201
  32. CYTOXAN [Concomitant]
     Dates: start: 20011101, end: 20011101
  33. ETOPOSIDE [Concomitant]
     Dates: start: 20001101, end: 20001201
  34. ETOPOSIDE [Concomitant]
     Dates: start: 20011101, end: 20011101
  35. THALIDOMIDE [Concomitant]
     Indication: CHEMOTHERAPY
     Dosage: 400MG WITH DOSE ADJUSTMENT OVER TIME QHS
     Route: 048
     Dates: start: 19991119, end: 20000301
  36. LORCET-HD [Concomitant]
     Dosage: UNK, PRN
     Route: 048
     Dates: start: 19990405
  37. PENICILLIN NOS [Concomitant]
     Dates: start: 20010201
  38. PENICILLIN NOS [Concomitant]
     Dosage: 500 MG, TID
     Dates: start: 20050408
  39. ANZEMET [Concomitant]
     Dates: start: 20030101
  40. CYTOXAN [Concomitant]
     Indication: MULTIPLE MYELOMA
     Dosage: UNK, UNK
     Dates: end: 20000301

REACTIONS (35)
  - SPINAL FRACTURE [None]
  - HEADACHE [None]
  - OSTEOMYELITIS [None]
  - INFLAMMATION [None]
  - JAW DISORDER [None]
  - NEUROPATHY PERIPHERAL [None]
  - HYPOAESTHESIA [None]
  - TOOTHACHE [None]
  - DYSGEUSIA [None]
  - DIARRHOEA [None]
  - OSTEONECROSIS OF JAW [None]
  - MASS [None]
  - MOOD SWINGS [None]
  - ASTHENIA [None]
  - VITREOUS FLOATERS [None]
  - ORAL DISORDER [None]
  - BONE DISORDER [None]
  - NEURALGIA [None]
  - PRODUCTIVE COUGH [None]
  - CONSTIPATION [None]
  - OSTEITIS [None]
  - IMPAIRED HEALING [None]
  - SWELLING [None]
  - HYPOAESTHESIA FACIAL [None]
  - BRONCHITIS [None]
  - LIVEDO RETICULARIS [None]
  - DYSPEPSIA [None]
  - SWELLING FACE [None]
  - ERYTHEMA [None]
  - ALVEOLAR OSTEITIS [None]
  - FATIGUE [None]
  - PAIN IN JAW [None]
  - FIBROSIS [None]
  - PLASMACYTOMA [None]
  - VISION BLURRED [None]
